FAERS Safety Report 6540580-3 (Version None)
Quarter: 2010Q1

REPORT INFORMATION
  Report Type: 
  Country: None (occurrence: None)
  Receive Date: 20100112
  Receipt Date: 20091023
  Transmission Date: 20100710
  Serious: No
  Sender: FDA-Public Use
  Company Number: 2009-00686

PATIENT
  Age: 61 Year
  Sex: Male
  Weight: 86.1834 kg

DRUGS (1)
  1. ALLERGY RELIEF NASAL GEL [Suspect]
     Dosage: Q 4 HRS - 1 WEEK; EARLY OCT 2009-1 WEEK

REACTIONS (1)
  - ANOSMIA [None]
